FAERS Safety Report 6545330-2 (Version None)
Quarter: 2010Q1

REPORT INFORMATION
  Report Type: 
  Country: None (occurrence: None)
  Receive Date: 20100121
  Receipt Date: 20100119
  Transmission Date: 20100710
  Serious: Yes (Life-Threatening)
  Sender: FDA-Public Use
  Company Number: AU-MERCK-1001USA01781

PATIENT
  Age: 66 Year
  Sex: Female
  Weight: 46 kg

DRUGS (2)
  1. FOSAMAX [Suspect]
     Route: 048
  2. PREMARIN [Concomitant]
     Route: 065

REACTIONS (1)
  - OESOPHAGEAL CARCINOMA [None]
